FAERS Safety Report 11814345 (Version 3)
Quarter: 2016Q1

REPORT INFORMATION
  Report Type: Report from Study
  Country: US (occurrence: US)
  Receive Date: 20151209
  Receipt Date: 20160224
  Transmission Date: 20160525
  Serious: Yes (Hospitalization, Other)
  Sender: FDA-Public Use
  Company Number: US-AMGEN-USASL2015128665

PATIENT
  Age: 83 Year
  Sex: Male

DRUGS (2)
  1. METHOTREXATE (METHOTREXATE SODIUM) [Suspect]
     Active Substance: METHOTREXATE SODIUM
     Indication: PRODUCT USED FOR UNKNOWN INDICATION
     Dosage: UNK, WEEKLY
     Route: 065
  2. ENBREL [Suspect]
     Active Substance: ETANERCEPT
     Indication: PSORIATIC ARTHROPATHY
     Dosage: 50 MG, WEEKLY
     Route: 065
     Dates: start: 20151104

REACTIONS (8)
  - Inappropriate schedule of drug administration [Unknown]
  - Arthralgia [Unknown]
  - Furuncle [Unknown]
  - Cardiac murmur [Unknown]
  - Pneumonia [Unknown]
  - Pleural effusion [Unknown]
  - Heart rate irregular [Unknown]
  - Ageusia [Unknown]

NARRATIVE: CASE EVENT DATE: 2015
